FAERS Safety Report 4662075-4 (Version None)
Quarter: 2005Q2

REPORT INFORMATION
  Report Type: 
  Country: None (occurrence: None)
  Receive Date: 20050516
  Receipt Date: 20050506
  Transmission Date: 20051028
  Serious: Yes (Other)
  Sender: FDA-Public Use
  Company Number: US-JNJFOC-20041205787

PATIENT
  Sex: Female
  Weight: 68.04 kg

DRUGS (12)
  1. REMICADE [Suspect]
     Indication: RHEUMATOID ARTHRITIS
     Route: 042
  2. METHOTREXATE [Concomitant]
     Indication: RHEUMATOID ARTHRITIS
  3. ATENOLOL [Concomitant]
     Indication: ARRHYTHMIA
  4. PREDNISONE TAB [Concomitant]
     Indication: RHEUMATOID ARTHRITIS
  5. PLAQUENIL [Concomitant]
     Indication: RHEUMATOID ARTHRITIS
  6. LEVOTHYROXINE SODIUM [Concomitant]
  7. OMEPRAZOLE [Concomitant]
  8. AMITRIPTYLINE HCL TAB [Concomitant]
     Indication: INSOMNIA
  9. AMITRIPTYLINE HCL TAB [Concomitant]
     Indication: PAIN
  10. CALCIUM GLUCONATE [Concomitant]
     Indication: NUTRITIONAL SUPPORT
  11. FOLIC ACID [Concomitant]
  12. FOSAMAX [Concomitant]
     Indication: OSTEOPOROSIS

REACTIONS (1)
  - MYCOBACTERIUM AVIUM COMPLEX INFECTION [None]
